FAERS Safety Report 8982075 (Version 1)
Quarter: 2012Q4

REPORT INFORMATION
  Report Type: 
  Country: US (occurrence: US)
  Receive Date: 20121212
  Receipt Date: 20121212
  Transmission Date: 20130627
  Serious: Yes (Hospitalization)
  Sender: FDA-Public Use
  Company Number: US-ASTELLAS-1108688

PATIENT
  Sex: Male

DRUGS (2)
  1. TARCEVA [Suspect]
     Indication: PANCREATIC CARCINOMA
     Route: 065
     Dates: start: 20050104
  2. NOVOLOG [Concomitant]

REACTIONS (5)
  - Malaise [Unknown]
  - Rash [Unknown]
  - Back pain [Unknown]
  - Weight decreased [Unknown]
  - Diarrhoea [Unknown]
